FAERS Safety Report 4628130-X (Version None)
Quarter: 2005Q2

REPORT INFORMATION
  Report Type: 
  Country: None (occurrence: None)
  Receive Date: 20050406
  Receipt Date: 20050329
  Transmission Date: 20051028
  Serious: Yes (Hospitalization, Other)
  Sender: FDA-Public Use
  Company Number: PH-GLAXOSMITHKLINE-B0376737A

PATIENT
  Age: 50 Year
  Sex: Female

DRUGS (1)
  1. AUGMENTIN '125' [Suspect]
     Indication: POSTOPERATIVE CARE
     Dosage: 1G TWICE PER DAY
     Route: 065

REACTIONS (5)
  - ABDOMINAL PAIN [None]
  - GASTROINTESTINAL INFECTION [None]
  - ILL-DEFINED DISORDER [None]
  - INTESTINAL OBSTRUCTION [None]
  - STOOL ANALYSIS ABNORMAL [None]
